FAERS Safety Report 11326678 (Version 1)
Quarter: 2015Q3

REPORT INFORMATION
  Report Type: Spontaneous
  Country: FR (occurrence: None)
  Receive Date: 20150729
  Receipt Date: 20150729
  Transmission Date: 20151125
  Serious: Yes (Other)
  Sender: FDA-Public Use
  Company Number: PR 12321

PATIENT
  Age: 56 Year
  Sex: Female

DRUGS (1)
  1. COSOPT [Suspect]
     Active Substance: DORZOLAMIDE HYDROCHLORIDE\TIMOLOL MALEATE
     Indication: GLAUCOMA
     Dates: start: 2010

REACTIONS (4)
  - Laryngeal discomfort [None]
  - Dyspnoea [None]
  - Treatment failure [None]
  - Dysphonia [None]

NARRATIVE: CASE EVENT DATE: 2010
